FAERS Safety Report 6656109-5 (Version None)
Quarter: 2010Q1

REPORT INFORMATION
  Report Type: 
  Country: None (occurrence: None)
  Receive Date: 20100329
  Receipt Date: 20100319
  Transmission Date: 20100710
  Serious: Yes (Hospitalization)
  Sender: FDA-Public Use
  Company Number: B0642315A

PATIENT
  Age: 2 Year
  Sex: Male
  Weight: 12 kg

DRUGS (2)
  1. VENTOLIN [Suspect]
     Indication: BRONCHOPNEUMONIA
     Dosage: 2.5MG SINGLE DOSE
     Route: 065
     Dates: start: 20100315, end: 20100315
  2. DUOCID [Concomitant]
     Route: 065
     Dates: start: 20100314

REACTIONS (2)
  - HYPERGLYCAEMIA [None]
  - TACHYCARDIA [None]
